FAERS Safety Report 11632745 (Version 1)
Quarter: 2015Q4

REPORT INFORMATION
  Report Type: Spontaneous
  Country: US (occurrence: US)
  Receive Date: 20151015
  Receipt Date: 20151015
  Transmission Date: 20160304
  Serious: Yes (Life-Threatening, Other)
  Sender: FDA-Public Use
  Company Number: US-APOTEX-2015AP006737

PATIENT
  Age: 18 Year
  Sex: Female
  Weight: 53 kg

DRUGS (4)
  1. MIDAZOLAM HYDROCHLORIDE INJECTION [Suspect]
     Active Substance: MIDAZOLAM HYDROCHLORIDE
     Indication: OSTEOTOMY
     Dosage: 2 MG, TOTAL
     Route: 065
  2. MORPHINE [Suspect]
     Active Substance: MORPHINE
     Indication: OSTEOTOMY
     Dosage: 2.5 MG, TOTAL
     Route: 065
  3. PROPOFOL. [Suspect]
     Active Substance: PROPOFOL
     Indication: OSTEOTOMY
     Dosage: UNK
     Route: 065
  4. FENTANYL TRANSDERMAL SYSTEM [Suspect]
     Active Substance: FENTANYL
     Indication: OSTEOTOMY
     Dosage: 30 ?G, TOTAL
     Route: 065

REACTIONS (1)
  - Respiratory depression [Recovered/Resolved]
